FAERS Safety Report 8200902-4 (Version None)
Quarter: 2012Q1

REPORT INFORMATION
  Report Type: 
  Country: None (occurrence: None)
  Receive Date: 20120312
  Receipt Date: 20110719
  Transmission Date: 20120608
  Serious: No
  Sender: FDA-Public Use
  Company Number: US-ABBOTT-11P-163-0841123-00

PATIENT
  Sex: Female
  Weight: 123.94 kg

DRUGS (1)
  1. LUPRON DEPOT [Suspect]
     Indication: UTERINE LEIOMYOMA
     Dates: start: 20100701

REACTIONS (3)
  - FALL [None]
  - HYPERTENSION [None]
  - FOOT FRACTURE [None]
